FAERS Safety Report 8339056-2 (Version None)
Quarter: 2012Q2

REPORT INFORMATION
  Report Type: 
  Country: None (occurrence: None)
  Receive Date: 20120502
  Receipt Date: 20120424
  Transmission Date: 20120825
  Serious: Yes (Other)
  Sender: FDA-Public Use
  Company Number: 1204-214

PATIENT
  Age: 84 Year
  Sex: Male
  Weight: 99.7913 kg

DRUGS (20)
  1. EYLEA [Suspect]
     Indication: AGE-RELATED MACULAR DEGENERATION
     Dosage: 2 MG, ONCE, INTRAVITREAL
     Dates: start: 20120326, end: 20120326
  2. CALCIUM 600 [Concomitant]
  3. CYMBALTA [Concomitant]
  4. METOLAZONE [Concomitant]
  5. MSM (METHYLSULFONYLMETHANE) [Concomitant]
  6. FISH OIL [Concomitant]
  7. FUROSEMIDE [Concomitant]
  8. MULTI-VITAMINS [Concomitant]
  9. POTASSIUM CHLORIDE ER [Concomitant]
  10. FLUOCINONIDE [Concomitant]
  11. METOPROLOL TARTRATE [Concomitant]
  12. PRAVASTATIN [Concomitant]
  13. WARFARIN SODIUM [Concomitant]
  14. DONEPEZIL HCL [Concomitant]
  15. FERROUS GLUCONATE [Concomitant]
  16. LEVOTHYROXINE SODIUM [Concomitant]
  17. NEURONTIN [Concomitant]
  18. DIGOXIN [Concomitant]
  19. FLAGYL [Concomitant]
  20. SEROQUEL [Concomitant]

REACTIONS (4)
  - VISUAL ACUITY REDUCED [None]
  - PUPILLARY REFLEX IMPAIRED [None]
  - VISUAL IMPAIRMENT [None]
  - MIOSIS [None]
